FAERS Safety Report 20895039 (Version 2)
Quarter: 2022Q2

REPORT INFORMATION
  Report Type: Spontaneous
  Country: JP (occurrence: JP)
  Receive Date: 20220531
  Receipt Date: 20220628
  Transmission Date: 20220721
  Serious: No
  Sender: FDA-Public Use
  Company Number: JP-GLAXOSMITHKLINE-JP2022JPN084676

PATIENT

DRUGS (15)
  1. SOTROVIMAB [Suspect]
     Active Substance: SOTROVIMAB
     Indication: COVID-19
     Dosage: 500 MG/DAY
     Route: 042
     Dates: start: 20220521, end: 20220521
  2. SENNOSIDES A AND B [Suspect]
     Active Substance: SENNOSIDES A AND B
     Indication: Constipation
     Dosage: 24 MG/DAY
     Route: 048
     Dates: start: 20220125, end: 20220207
  3. SENNOSIDES A AND B [Suspect]
     Active Substance: SENNOSIDES A AND B
     Dosage: 24 MG
     Route: 048
     Dates: start: 20220506, end: 20220519
  4. SENNOSIDES A AND B [Suspect]
     Active Substance: SENNOSIDES A AND B
     Dosage: 24 MG
     Route: 048
     Dates: start: 20220522, end: 20220522
  5. GLYCOSAMINOGLYCANS [Suspect]
     Active Substance: GLYCOSAMINOGLYCANS
     Indication: Dry skin prophylaxis
     Dosage: UNK
     Dates: start: 20201026
  6. TRANSAMIN [Suspect]
     Active Substance: TRANEXAMIC ACID
     Indication: Abortion threatened
     Dosage: 750 MG/DAY
     Route: 048
     Dates: start: 20220111, end: 20220115
  7. TRANSAMIN [Suspect]
     Active Substance: TRANEXAMIC ACID
     Indication: Pyrexia
     Dosage: 750 MG
     Route: 048
     Dates: start: 20220201, end: 20220207
  8. ACETAMINOPHEN\IBUPROFEN [Suspect]
     Active Substance: ACETAMINOPHEN\IBUPROFEN
     Indication: Abortion threatened
     Dosage: 90 MG/DAY
     Route: 048
     Dates: start: 20220111, end: 20220115
  9. CALONAL [Suspect]
     Active Substance: ACETAMINOPHEN
     Indication: Pyrexia
     Dosage: 800 MG/DAY
     Route: 048
     Dates: start: 20220201, end: 20220207
  10. CALONAL [Suspect]
     Active Substance: ACETAMINOPHEN
     Indication: Oropharyngeal pain
     Dosage: 400 MG
     Route: 048
     Dates: start: 20220521, end: 20220521
  11. CARBOCYSTEINE [Suspect]
     Active Substance: CARBOCYSTEINE
     Indication: Pyrexia
     Dosage: 1500 MG/DAY
     Route: 048
     Dates: start: 20220201, end: 20220207
  12. FERROUS SULFATE [Suspect]
     Active Substance: FERROUS SULFATE
     Indication: Anaemia
     Dosage: 105 MG/DAY
     Route: 048
     Dates: start: 20220311, end: 20220410
  13. FERROUS SULFATE [Suspect]
     Active Substance: FERROUS SULFATE
     Dosage: 105 MG
     Route: 048
     Dates: start: 20220617
  14. ISOXSUPRINE HYDROCHLORIDE [Suspect]
     Active Substance: ISOXSUPRINE HYDROCHLORIDE
     Indication: Abortion threatened
     Dosage: 30 MG/DAY
     Route: 048
     Dates: start: 20220420, end: 20220503
  15. PULMICORT TURBUHALER [Suspect]
     Active Substance: BUDESONIDE
     Indication: Cough
     Dosage: 200 ?G/DAY
     Route: 055
     Dates: start: 20220523

REACTIONS (1)
  - Exposure during pregnancy [Unknown]
